FAERS Safety Report 25711976 (Version 2)
Quarter: 2025Q4

REPORT INFORMATION
  Report Type: Spontaneous
  Country: CA (occurrence: CA)
  Receive Date: 20250821
  Receipt Date: 20251016
  Transmission Date: 20260118
  Serious: Yes (Other)
  Sender: PFIZER
  Company Number: CA-PFIZER INC-202500024176

PATIENT
  Age: 44 Year
  Sex: Female

DRUGS (8)
  1. RUXIENCE [Suspect]
     Active Substance: RITUXIMAB-PVVR
     Indication: Rheumatoid arthritis
     Dosage: 1000 MG, DAY 1 AND DAY 15
     Route: 042
     Dates: start: 20240715, end: 20240729
  2. RUXIENCE [Suspect]
     Active Substance: RITUXIMAB-PVVR
     Dosage: 1000 MG, DAY 1 AND DAY 15
     Route: 042
     Dates: start: 20250316
  3. RUXIENCE [Suspect]
     Active Substance: RITUXIMAB-PVVR
     Dosage: 1000 MG, DAY 1 AND DAY 15
     Route: 042
     Dates: start: 20250401
  4. FOLIC ACID [Concomitant]
     Active Substance: FOLIC ACID
     Dosage: 3 MG, WEEKLY
  5. METHOTREXATE [Concomitant]
     Active Substance: METHOTREXATE
     Dosage: 15 MG, WEEKLY
     Route: 048
  6. OMEGA 3 6 9 COMPLEX [Concomitant]
     Dosage: 3-6-9 TABLETS DAILY
     Route: 048
  7. PREDNISONE ACETATE [Concomitant]
     Active Substance: PREDNISONE ACETATE
     Dosage: 5 MG, 1X/DAY
  8. VITAMIN D3 WEEKLY [Concomitant]
     Dosage: 1000 IU, DAILY

REACTIONS (18)
  - Nephrolithiasis [Unknown]
  - Alopecia [Not Recovered/Not Resolved]
  - Abdominal pain [Unknown]
  - Blood pressure increased [Unknown]
  - Brain fog [Unknown]
  - Erythema [Recovering/Resolving]
  - Condition aggravated [Unknown]
  - Haemorrhoidal haemorrhage [Not Recovered/Not Resolved]
  - Heavy menstrual bleeding [Unknown]
  - Palpitations [Unknown]
  - Urinary tract infection [Not Recovered/Not Resolved]
  - Upper respiratory tract infection [Unknown]
  - Vulvovaginal mycotic infection [Not Recovered/Not Resolved]
  - Musculoskeletal stiffness [Unknown]
  - Diarrhoea [Unknown]
  - Constipation [Unknown]
  - Erythema [Unknown]
  - Osteoarthritis [Unknown]

NARRATIVE: CASE EVENT DATE: 20241201
